FAERS Safety Report 7727436-5 (Version None)
Quarter: 2011Q3

REPORT INFORMATION
  Report Type: 
  Country: None (occurrence: None)
  Receive Date: 20110902
  Receipt Date: 20110901
  Transmission Date: 20111222
  Serious: Yes (Death, Hospitalization, Other)
  Sender: FDA-Public Use
  Company Number: JP-ABBOTT-11P-087-0726015-00

PATIENT
  Sex: Male

DRUGS (10)
  1. HUMIRA [Suspect]
     Dates: start: 20110311, end: 20110311
  2. HUMIRA [Suspect]
     Dates: start: 20110325, end: 20110506
  3. TPN [Concomitant]
     Indication: PRODUCT USED FOR UNKNOWN INDICATION
     Dosage: 3 DOSAGE FORMS DAILY
     Dates: end: 20110508
  4. MESALAMINE [Concomitant]
     Indication: CROHN'S DISEASE
     Dates: end: 20110509
  5. FERROUS CITRATE [Concomitant]
     Indication: PROPHYLAXIS
  6. PREDNISOLONE [Concomitant]
     Indication: CROHN'S DISEASE
     Route: 048
     Dates: end: 20110415
  7. HUMIRA [Suspect]
     Indication: CROHN'S DISEASE
     Route: 058
     Dates: start: 20110224, end: 20110224
  8. MESALAMINE [Concomitant]
     Dates: end: 20110509
  9. FAMOTIDINE [Concomitant]
     Indication: GASTRITIS PROPHYLAXIS
     Route: 048
     Dates: end: 20110415
  10. FAMOTIDINE [Concomitant]
     Indication: GASTRITIS

REACTIONS (9)
  - CARDIO-RESPIRATORY ARREST [None]
  - MULTI-ORGAN FAILURE [None]
  - ASPIRATION [None]
  - SEPSIS [None]
  - ABDOMINAL DISTENSION [None]
  - PNEUMONIA ASPIRATION [None]
  - SHOCK [None]
  - SUBILEUS [None]
  - VENTRICULAR FIBRILLATION [None]
